FAERS Safety Report 16946309 (Version 1)
Quarter: 2019Q4

REPORT INFORMATION
  Report Type: Spontaneous
  Country: US (occurrence: US)
  Receive Date: 20191022
  Receipt Date: 20191022
  Transmission Date: 20200122
  Serious: No
  Sender: FDA-Public Use
  Company Number: US-GLAXOSMITHKLINE-US2019187751

PATIENT

DRUGS (2)
  1. GATORADE [Concomitant]
     Active Substance: CARBOHYDRATES\ELECTROLYTES NOS\VITAMINS
     Indication: HANGOVER
     Dosage: UNK
  2. EXCEDRIN [Suspect]
     Active Substance: ACETAMINOPHEN\ASPIRIN\CAFFEINE
     Indication: HANGOVER
     Dosage: UNK

REACTIONS (1)
  - Product use in unapproved indication [Unknown]
